FAERS Safety Report 6170834-4 (Version None)
Quarter: 2009Q2

REPORT INFORMATION
  Report Type: 
  Country: None (occurrence: None)
  Receive Date: 20090427
  Receipt Date: 20090415
  Transmission Date: 20091009
  Serious: Yes (Hospitalization)
  Sender: FDA-Public Use
  Company Number: 234111K09USA

PATIENT
  Age: 62 Year
  Sex: Female
  Weight: 73 kg

DRUGS (5)
  1. REBIF [Suspect]
     Indication: MULTIPLE SCLEROSIS
     Dosage: 44 MCG, 3 IN 1 WEEKS, SUBCUTANEOUS
     Route: 058
     Dates: start: 20020411, end: 20090405
  2. CYMBALTA [Concomitant]
  3. AVANDIA [Concomitant]
  4. KLONOPIN [Concomitant]
  5. DETROL [Concomitant]

REACTIONS (1)
  - BIPOLAR DISORDER [None]
